FAERS Safety Report 8881105 (Version 1)
Quarter: 2012Q4

REPORT INFORMATION
  Report Type: 
  Country: US (occurrence: US)
  Receive Date: 20121031
  Receipt Date: 20121031
  Transmission Date: 20130627
  Serious: Yes (Other)
  Sender: FDA-Public Use
  Company Number: US-ROCHE-1122486

PATIENT
  Sex: Male

DRUGS (2)
  1. NUTROPIN AQ [Suspect]
     Indication: DWARFISM
     Route: 065
  2. NUTROPIN AQ [Suspect]
     Route: 065

REACTIONS (4)
  - Hip fracture [Unknown]
  - Growth retardation [Unknown]
  - Drug ineffective [Unknown]
  - Insulin-like growth factor decreased [Unknown]
